FAERS Safety Report 8286367-5 (Version None)
Quarter: 2012Q2

REPORT INFORMATION
  Report Type: 
  Country: None (occurrence: None)
  Receive Date: 20120416
  Receipt Date: 20120408
  Transmission Date: 20120825
  Serious: Yes (Other)
  Sender: FDA-Public Use
  Company Number: BR-BAYER-2012-024537

PATIENT
  Age: 37 Year
  Sex: Female

DRUGS (3)
  1. MIRENA [Suspect]
     Dosage: 20 ?G/D, CONT
     Route: 015
     Dates: start: 20040101, end: 20070101
  2. PHENOBARBITAL TAB [Concomitant]
     Indication: CONVULSION
     Dosage: 2 DF, QD
     Route: 048
     Dates: start: 19970101
  3. MIRENA [Suspect]
     Indication: CONTRACEPTION
     Dosage: 20 ?G/D, CONT
     Route: 015
     Dates: start: 20080310

REACTIONS (6)
  - MENSTRUATION IRREGULAR [None]
  - CHEST PAIN [None]
  - ECTOPIC PREGNANCY [None]
  - CARDIAC MURMUR [None]
  - PREGNANCY WITH CONTRACEPTIVE DEVICE [None]
  - TRICUSPID VALVE DISEASE [None]
